FAERS Safety Report 13298584 (Version 1)
Quarter: 2017Q1

REPORT INFORMATION
  Report Type: Spontaneous
  Country: US (occurrence: US)
  Receive Date: 20170306
  Receipt Date: 20170306
  Transmission Date: 20170428
  Serious: No
  Sender: FDA-Public Use
  Company Number: US-PFIZER INC-2017096349

PATIENT
  Age: 17 Year
  Sex: Male
  Weight: 62 kg

DRUGS (12)
  1. GENOTROPIN [Suspect]
     Active Substance: SOMATROPIN
     Dosage: 2.4 MG, DAILY
     Route: 058
     Dates: start: 20160114
  2. GENOTROPIN [Suspect]
     Active Substance: SOMATROPIN
     Indication: MUCOPOLYSACCHARIDOSIS II
     Dosage: 2.6 MG, DAILY
     Route: 058
     Dates: start: 20130806
  3. HEPARIN LOCK FLUSH [Concomitant]
     Active Substance: HEPARIN SODIUM
     Dosage: 1 ML, AS NEEDED
     Route: 042
     Dates: start: 20160114
  4. ELAPRASE [Concomitant]
     Active Substance: IDURSULFASE
     Dosage: 36 MG, UNK (EVERY 7 DAYS)
     Route: 042
     Dates: start: 20160114
  5. HEPARIN LOCK FLUSH [Concomitant]
     Active Substance: HEPARIN SODIUM
     Dosage: UNK
  6. NORMAL SALINE [Concomitant]
     Active Substance: SODIUM CHLORIDE
     Dosage: UNK
  7. GENOTROPIN [Suspect]
     Active Substance: SOMATROPIN
     Dosage: 2.6 MG, DAILY
     Route: 058
     Dates: start: 20170220
  8. ALCOHOL WIPE [Concomitant]
     Active Substance: ISOPROPYL ALCOHOL
     Dosage: UNK, AS NEEDED
     Route: 061
     Dates: start: 20160114
  9. NORMAL SALINE [Concomitant]
     Active Substance: SODIUM CHLORIDE
     Dosage: 10 ML, AS NEEDED
     Route: 042
     Dates: start: 20160114
  10. ALCOHOL WIPE [Concomitant]
     Active Substance: ISOPROPYL ALCOHOL
     Dosage: UNK
     Dates: start: 20141201
  11. ELAPRASE [Concomitant]
     Active Substance: IDURSULFASE
     Indication: MUCOPOLYSACCHARIDOSIS II
     Dosage: UNK, WEEKLY
  12. GENOTROPIN [Suspect]
     Active Substance: SOMATROPIN
     Indication: BODY HEIGHT BELOW NORMAL
     Dosage: 1.8 MG, UNK
     Dates: start: 201308

REACTIONS (4)
  - Headache [Unknown]
  - Flatulence [Unknown]
  - Abdominal discomfort [Unknown]
  - Lactose intolerance [Unknown]
